FAERS Safety Report 7014736-X (Version None)
Quarter: 2010Q3

REPORT INFORMATION
  Report Type: 
  Country: None (occurrence: None)
  Receive Date: 20100927
  Receipt Date: 20100921
  Transmission Date: 20110219
  Serious: Yes (Death)
  Sender: FDA-Public Use
  Company Number: PHHY2010IT63009

PATIENT
  Sex: Male

DRUGS (7)
  1. ZOMETA [Suspect]
     Indication: MULTIPLE MYELOMA
     Dosage: 4 MG (CYCLIC)
     Route: 042
     Dates: start: 20090616, end: 20090910
  2. AREDIA [Suspect]
     Indication: MULTIPLE MYELOMA
     Dosage: 90 MG (TOTAL)
     Route: 042
     Dates: start: 20091027, end: 20091027
  3. OXYCONTIN [Suspect]
     Dosage: 40 MG, UNK
     Route: 048
     Dates: start: 20091106
  4. RIVOTRIL [Concomitant]
     Dosage: 5 DROPS
     Route: 048
     Dates: start: 20091106
  5. ALLOPURINOL [Concomitant]
     Dosage: 300 MG, UNK
     Route: 048
  6. RANIDIL [Concomitant]
     Dosage: 150 MG, UNK
     Route: 048
  7. DEPALGOS [Concomitant]
     Dosage: 1 POSOLOGIC UNIT (10 MG+325 MG)
     Route: 048

REACTIONS (1)
  - CARDIO-RESPIRATORY ARREST [None]
